FAERS Safety Report 9014024 (Version 1)
Quarter: 2013Q1

REPORT INFORMATION
  Report Type: Report from Study
  Country: GB (occurrence: GB)
  Receive Date: 20130115
  Receipt Date: 20130115
  Transmission Date: 20140127
  Serious: Yes (Death)
  Sender: FDA-Public Use
  Company Number: GB-ROCHE-1178936

PATIENT
  Sex: Female

DRUGS (1)
  1. RITUXIMAB [Suspect]
     Indication: RHEUMATOID ARTHRITIS
     Dosage: ON AN UNSPECIFIED DATE IN SEP/2007, THE PATIENT HAD LAST DOSE PRIOR TO SAE.
     Route: 065
     Dates: start: 200708

REACTIONS (2)
  - Cerebrovascular accident [Fatal]
  - Cardiomyopathy [Fatal]
